FAERS Safety Report 11223442 (Version 1)
Quarter: 2015Q2

REPORT INFORMATION
  Report Type: Spontaneous
  Country: RO (occurrence: RO)
  Receive Date: 20150628
  Receipt Date: 20150628
  Transmission Date: 20150821
  Serious: Yes (Hospitalization)
  Sender: FDA-Public Use
  Company Number: RO-TEVA-573810ISR

PATIENT
  Age: 48 Year
  Sex: Female

DRUGS (1)
  1. CARBAMAZEPINE. [Suspect]
     Active Substance: CARBAMAZEPINE
     Indication: SUICIDE ATTEMPT
     Dosage: 40 TABLETS (CONC: 200MG)
     Route: 048

REACTIONS (5)
  - Coma [Unknown]
  - Overdose [Recovered/Resolved]
  - Encephalopathy [Recovered/Resolved]
  - Suicide attempt [Recovered/Resolved]
  - Hyperammonaemia [Recovered/Resolved]
